FAERS Safety Report 22283637 (Version 1)
Quarter: 2023Q2

REPORT INFORMATION
  Report Type: Spontaneous
  Country: TR (occurrence: TR)
  Receive Date: 20230504
  Receipt Date: 20230504
  Transmission Date: 20230722
  Serious: Yes (Other)
  Sender: FDA-Public Use
  Company Number: TR-HRAPH01-2023000168

PATIENT
  Sex: Female

DRUGS (1)
  1. ELLA [Suspect]
     Active Substance: ULIPRISTAL ACETATE
     Indication: Post coital contraception
     Dosage: MORE THAN 15 ELLAONE TABLETS TAKEN BETWEEN 25 DEC 2022 AND FEB 2023
     Route: 048
     Dates: start: 20221225, end: 202302

REACTIONS (3)
  - Biochemical pregnancy [Recovered/Resolved]
  - Unintended pregnancy [Recovered/Resolved]
  - Inappropriate schedule of product administration [Recovered/Resolved]

NARRATIVE: CASE EVENT DATE: 20221225
